FAERS Safety Report 11750463 (Version 6)
Quarter: 2016Q1

REPORT INFORMATION
  Report Type: Report from Study
  Country: US (occurrence: None)
  Receive Date: 20151118
  Receipt Date: 20160304
  Transmission Date: 20160525
  Serious: Yes (Other)
  Sender: FDA-Public Use
  Company Number: US-MDT-ADR-2015-02178

PATIENT
  Age: 69 Year
  Sex: Female

DRUGS (2)
  1. DILAUDID [Suspect]
     Active Substance: HYDROMORPHONE HYDROCHLORIDE
     Dosage: 6.498 MG/DAY
  2. COMPOUNDED BACLOFEN INTRATHECAL (250 MCG/ML) [Suspect]
     Active Substance: BACLOFEN
     Indication: CANCER PAIN
     Dosage: 64.98 MCG/DAY

REACTIONS (6)
  - Malaise [None]
  - Medical device site fibrosis [None]
  - Pain [None]
  - Tremor [None]
  - Drug withdrawal syndrome [None]
  - Device occlusion [None]
